FAERS Safety Report 4750455-8 (Version None)
Quarter: 2005Q3

REPORT INFORMATION
  Report Type: 
  Country: None (occurrence: None)
  Receive Date: 20050823
  Receipt Date: 20050816
  Transmission Date: 20060218
  Serious: Yes (Death, Hospitalization)
  Sender: FDA-Public Use
  Company Number: US-GLAXOSMITHKLINE-A0570462A

PATIENT
  Age: 82 Year
  Sex: Female

DRUGS (3)
  1. WELLBUTRIN [Suspect]
     Indication: DEPRESSION
     Route: 048
     Dates: start: 20020401
  2. HEART MEDICATION [Concomitant]
  3. UNSPECIFIED ANTI-DIABETIC [Concomitant]

REACTIONS (3)
  - BRAIN DAMAGE [None]
  - CONVULSION [None]
  - GAIT DISTURBANCE [None]
